FAERS Safety Report 9646458 (Version 1)
Quarter: 2013Q4

REPORT INFORMATION
  Report Type: Spontaneous
  Country: US (occurrence: US)
  Receive Date: 20131025
  Receipt Date: 20131025
  Transmission Date: 20140711
  Serious: Yes (Hospitalization)
  Sender: FDA-Public Use
  Company Number: US-B.I. PHARMACEUTICALS,INC./RIDGEFIELD-2013-BI-33046BP

PATIENT
  Age: 61 Year
  Sex: Male
  Weight: 107 kg

DRUGS (8)
  1. MIRAPEX [Suspect]
     Indication: PARKINSON^S DISEASE
     Dosage: 4.5 MG
     Route: 048
     Dates: start: 201305, end: 201309
  2. CELEXA [Concomitant]
     Indication: DEPRESSION
     Dosage: 25 MG
     Route: 048
  3. ASPIRIN [Concomitant]
     Dosage: 81 MCG
     Route: 048
  4. ZOCOR [Concomitant]
     Indication: BLOOD CHOLESTEROL INCREASED
     Dosage: 40 MG
     Route: 048
  5. CLARITIN [Concomitant]
     Indication: SEASONAL ALLERGY
     Dosage: 1 ANZ
     Route: 048
  6. ALBUTEROL [Concomitant]
     Indication: EMPHYSEMA
     Route: 055
  7. LASIX [Concomitant]
     Indication: OEDEMA PERIPHERAL
     Dosage: 80 MG
     Route: 048
  8. ENALAPRIL [Concomitant]
     Indication: HYPERTENSION
     Dosage: 40 MG
     Route: 048

REACTIONS (4)
  - Wound infection [Recovered/Resolved]
  - Local swelling [Recovered/Resolved]
  - Excoriation [Recovered/Resolved]
  - Fall [Recovered/Resolved]
